FAERS Safety Report 23197035 (Version 1)
Quarter: 2023Q4

REPORT INFORMATION
  Report Type: Spontaneous
  Country: US (occurrence: US)
  Receive Date: 20231117
  Receipt Date: 20231117
  Transmission Date: 20240110
  Serious: Yes (Other)
  Sender: FDA-Public Use
  Company Number: US-PFIZER INC-PV202300186121

PATIENT
  Age: 75 Year
  Sex: Female

DRUGS (7)
  1. IBRANCE [Suspect]
     Active Substance: PALBOCICLIB
     Indication: Breast cancer metastatic
     Dosage: 75 MG, CYCLIC (TAKE 1 CAPSULES BY MOUTH DAILY ON DAYS 1-21, THEN OFF 7 DAYS)
     Route: 048
     Dates: start: 20160823
  2. IBRANCE [Suspect]
     Active Substance: PALBOCICLIB
     Indication: Breast cancer stage IV
  3. FEMARA [Suspect]
     Active Substance: LETROZOLE
     Indication: Breast cancer metastatic
     Dosage: 2.5 MG, DAILY
     Dates: start: 20160823
  4. FEMARA [Suspect]
     Active Substance: LETROZOLE
     Indication: Breast cancer stage IV
  5. ACCUPRIL [Concomitant]
     Active Substance: QUINAPRIL HYDROCHLORIDE
     Indication: Hypertension
     Dosage: 40 MG, 2X/DAY
  6. METOPROLOL SUCCINATE [Concomitant]
     Active Substance: METOPROLOL SUCCINATE
     Indication: Hypertension
     Dosage: UNK, 2X/DAY
  7. NORVASC [Concomitant]
     Active Substance: AMLODIPINE BESYLATE
     Indication: Hypertension
     Dosage: 10 MG, DAILY

REACTIONS (6)
  - Cytopenia [Unknown]
  - Pancytopenia [Unknown]
  - Fatigue [Unknown]
  - Constipation [Unknown]
  - Arthralgia [Unknown]
  - Asthenia [Unknown]
